FAERS Safety Report 7522780-9 (Version None)
Quarter: 2011Q2

REPORT INFORMATION
  Report Type: 
  Country: None (occurrence: None)
  Receive Date: 20110603
  Receipt Date: 20110531
  Transmission Date: 20111010
  Serious: Yes (Hospitalization)
  Sender: FDA-Public Use
  Company Number: US-B.I. PHARMACEUTICALS,INC./RIDGEFIELD-2011-BP-10088BP

PATIENT
  Age: 90 Year
  Sex: Male
  Weight: 96.62 kg

DRUGS (18)
  1. LIDODERM [Concomitant]
  2. SIMVASTATIN [Concomitant]
     Dosage: 20 MG
  3. FISH OIL [Concomitant]
     Dosage: 2400 MG
  4. PRADAXA [Suspect]
     Indication: ATRIAL FIBRILLATION
     Route: 048
     Dates: start: 20110201, end: 20110220
  5. ZETIA [Concomitant]
     Dosage: 10 MG
  6. TAMSULOSIN HCL [Concomitant]
     Dosage: 0.4 MG
  7. DIGOXIN [Concomitant]
     Dosage: 0.125 MG
  8. FENTANYL [Concomitant]
     Route: 061
  9. POTASSIUM CHLORIDE [Concomitant]
     Dosage: 30 MEQ
  10. PRADAXA [Suspect]
     Indication: AORTIC VALVE REPLACEMENT
  11. COREG [Concomitant]
     Dosage: 75 MG
  12. ASPIRIN [Concomitant]
     Dosage: 325 MG
  13. ACTOS [Concomitant]
     Dosage: 30 MG
  14. LASIX [Concomitant]
     Dosage: 40 MG
  15. NAPROXEN (ALEVE) [Concomitant]
     Dosage: 660 MG
  16. TOVIA [Concomitant]
     Dosage: 8 MG
  17. MULTAQ [Concomitant]
     Dosage: 800 MG
  18. LYRICA [Concomitant]
     Dosage: 150 MG

REACTIONS (1)
  - GASTROINTESTINAL HAEMORRHAGE [None]
